FAERS Safety Report 10404874 (Version 1)
Quarter: 2014Q3

REPORT INFORMATION
  Report Type: Spontaneous
  Country: US (occurrence: US)
  Receive Date: 20140825
  Receipt Date: 20140825
  Transmission Date: 20150326
  Serious: Yes (Other)
  Sender: FDA-Public Use
  Company Number: US-AMGEN-USASP2014063321

PATIENT
  Age: 79 Year
  Sex: Female

DRUGS (1)
  1. PROLIA [Suspect]
     Active Substance: DENOSUMAB
     Indication: OSTEOPENIA
     Dosage: UNK UNK, Q6MO
     Route: 065
     Dates: start: 2013

REACTIONS (9)
  - Feeling abnormal [Unknown]
  - Rash [Unknown]
  - Arthropathy [Unknown]
  - Paraesthesia [Unknown]
  - Sleep disorder due to general medical condition, insomnia type [Unknown]
  - Hypoaesthesia [Unknown]
  - Back pain [Unknown]
  - Arthritis [Unknown]
  - Abasia [Unknown]

NARRATIVE: CASE EVENT DATE: 20140712
